FAERS Safety Report 7020355-1 (Version None)
Quarter: 2010Q3

REPORT INFORMATION
  Report Type: 
  Country: None (occurrence: None)
  Receive Date: 20100927
  Receipt Date: 20100413
  Transmission Date: 20110219
  Serious: Yes (Disabling)
  Sender: FDA-Public Use
  Company Number: APP200900461

PATIENT
  Age: 51 Year
  Sex: Male
  Weight: 113.3993 kg

DRUGS (5)
  1. XYLOCAINE [Suspect]
     Indication: MUSCULOSKELETAL PAIN
     Dosage: INTRA-ARTICULAR
     Route: 014
     Dates: start: 20050208
  2. XYLOCAINE W/ EPINEPHRENE [Suspect]
     Indication: LOCAL ANAESTHESIA
     Dosage: LOCAL INFILTRATION
     Dates: start: 20050208
  3. SENSORCAINE [Suspect]
     Indication: NERVE BLOCK
     Dosage: 30 ML ADMINISTERED TO RIGHT NECK, INJECTION
  4. STRYKER PAIN PUMP [Suspect]
     Indication: MUSCULOSKELETAL PAIN
     Dates: start: 20050208
  5. ANCEF [Concomitant]

REACTIONS (4)
  - JOINT INJURY [None]
  - JOINT RANGE OF MOTION DECREASED [None]
  - MUSCULOSKELETAL PAIN [None]
  - PARAESTHESIA [None]
